FAERS Safety Report 4316322-9 (Version None)
Quarter: 2004Q1

REPORT INFORMATION
  Report Type: 
  Country: None (occurrence: None)
  Receive Date: 20040310
  Receipt Date: 20030520
  Transmission Date: 20041129
  Serious: Yes (Hospitalization)
  Sender: FDA-Public Use
  Company Number: HQWYE300121MAY03

PATIENT
  Age: 45 Year
  Sex: Female
  Weight: 64.92 kg

DRUGS (7)
  1. PROTONIX [Suspect]
     Indication: GASTROOESOPHAGEAL REFLUX DISEASE
     Dosage: 40 MG DAILY, ORAL
     Route: 048
     Dates: start: 20030428, end: 20030501
  2. SOLU-MEDROL [Concomitant]
  3. ATARAX [Concomitant]
  4. DOXEPIN HCL [Concomitant]
  5. ZYRTEC [Concomitant]
  6. RANITIDINE [Concomitant]
  7. MORPHINE SULFATE [Concomitant]

REACTIONS (1)
  - STEVENS-JOHNSON SYNDROME [None]
